FAERS Safety Report 9150786 (Version 2)
Quarter: 2013Q2

REPORT INFORMATION
  Report Type: Report from Study
  Country: DE (occurrence: DE)
  Receive Date: 20130308
  Receipt Date: 20130625
  Transmission Date: 20140414
  Serious: Yes (Hospitalization)
  Sender: FDA-Public Use
  Company Number: DE-ROCHE-1198646

PATIENT
  Sex: Female

DRUGS (12)
  1. RANIBIZUMAB [Suspect]
     Indication: DIABETIC RETINAL OEDEMA
     Route: 050
  2. RANIBIZUMAB [Suspect]
     Route: 050
     Dates: start: 20120902
  3. RANIBIZUMAB [Suspect]
     Route: 050
     Dates: start: 20121010
  4. RANIBIZUMAB [Suspect]
     Route: 050
     Dates: start: 20121107, end: 20121107
  5. LANTUS [Concomitant]
     Route: 065
     Dates: start: 20130407
  6. AMLODIPINE [Concomitant]
  7. BISOPROLOL [Concomitant]
  8. JANUVIA [Concomitant]
  9. SIMVAHEXAL [Concomitant]
  10. SIOFOR [Concomitant]
  11. SICCAPROTECT [Concomitant]
     Route: 065
  12. DEXPANTHENOL [Concomitant]
     Route: 031

REACTIONS (4)
  - Cerebrovascular accident [Recovered/Resolved]
  - Microangiopathy [Recovered/Resolved with Sequelae]
  - Brain stem infarction [Recovered/Resolved with Sequelae]
  - Fall [Unknown]
